FAERS Safety Report 25758967 (Version 1)
Quarter: 2025Q3

REPORT INFORMATION
  Report Type: Spontaneous
  Country: US (occurrence: US)
  Receive Date: 20250904
  Receipt Date: 20250904
  Transmission Date: 20251021
  Serious: Yes (Other)
  Sender: ROCHE
  Company Number: US-ROCHE-10000374992

PATIENT
  Age: 39 Year
  Sex: Female

DRUGS (2)
  1. TRASTUZUMAB [Suspect]
     Active Substance: TRASTUZUMAB
     Indication: Human epidermal growth factor receptor positive
     Route: 065
  2. PERTUZUMAB [Suspect]
     Active Substance: PERTUZUMAB
     Indication: Human epidermal growth factor receptor positive
     Route: 065

REACTIONS (2)
  - Metastases to central nervous system [Unknown]
  - Liver disorder [Unknown]
